FAERS Safety Report 13699744 (Version 1)
Quarter: 2017Q2

REPORT INFORMATION
  Report Type: Report from Study
  Country: None (occurrence: AU)
  Receive Date: 20170629
  Receipt Date: 20170629
  Transmission Date: 20170830
  Serious: Yes (Hospitalization)
  Sender: FDA-Public Use
  Company Number: AU-ABBVIE-17P-008-2019306-00

PATIENT
  Age: 76 Year
  Sex: Female

DRUGS (1)
  1. DUODOPA [Suspect]
     Active Substance: CARBIDOPA\LEVODOPA
     Indication: PARKINSON^S DISEASE
     Dosage: 16 HOUR THERAPY/PEJ
     Route: 050
     Dates: start: 20161024

REACTIONS (3)
  - Lumbar vertebral fracture [Unknown]
  - Stoma site pain [Unknown]
  - Back pain [Unknown]

NARRATIVE: CASE EVENT DATE: 20170622
